FAERS Safety Report 4534160-9 (Version None)
Quarter: 2004Q4

REPORT INFORMATION
  Report Type: 
  Country: None (occurrence: None)
  Receive Date: 20041213
  Receipt Date: 20040217
  Transmission Date: 20050328
  Serious: Yes (Other)
  Sender: FDA-Public Use
  Company Number: 359258

PATIENT
  Age: 81 Year
  Sex: Female

DRUGS (1)
  1. TICLID [Suspect]
     Indication: DRUG USE FOR UNKNOWN INDICATION
     Dosage: ORAL
     Route: 048
     Dates: start: 20040115

REACTIONS (5)
  - DERMATITIS EXFOLIATIVE [None]
  - PAIN [None]
  - RASH [None]
  - RASH SCALY [None]
  - SKIN BLEEDING [None]
